FAERS Safety Report 8536677-9 (Version None)
Quarter: 2012Q3

REPORT INFORMATION
  Report Type: 
  Country: None (occurrence: None)
  Receive Date: 20120718
  Receipt Date: 20120718
  Transmission Date: 20120928
  Serious: Yes (Hospitalization)
  Sender: FDA-Public Use
  Company Number: None

PATIENT
  Sex: Female
  Weight: 74.5 kg

DRUGS (10)
  1. BAVITUXIMAB [Suspect]
     Indication: BREAST CANCER METASTATIC
     Dosage: 225 MG QWEEK IV
     Route: 042
     Dates: start: 20120711
  2. NICOTINE [Concomitant]
  3. MORPHINE SULFATE [Concomitant]
  4. ZOFRAN [Concomitant]
  5. PACLITAXEL [Suspect]
     Indication: BREAST CANCER METASTATIC
     Dosage: 145 MG QWEEK IV
     Route: 042
     Dates: start: 20120627
  6. ACETAMINOPHEN [Concomitant]
  7. COMPAZINE [Concomitant]
  8. BUPROPION HCL [Concomitant]
  9. CIPROFLAXACIN [Concomitant]
  10. DOCUSATE SODIUM [Concomitant]

REACTIONS (3)
  - PAIN IN EXTREMITY [None]
  - OEDEMA PERIPHERAL [None]
  - EMBOLISM [None]
